FAERS Safety Report 12539286 (Version 3)
Quarter: 2016Q3

REPORT INFORMATION
  Report Type: Report from Study
  Country: US (occurrence: US)
  Receive Date: 20160708
  Receipt Date: 20160803
  Transmission Date: 20161109
  Serious: No
  Sender: FDA-Public Use
  Company Number: US-AMGEN-USASL2016085094

PATIENT
  Age: 57 Year
  Sex: Female

DRUGS (1)
  1. ENBREL [Suspect]
     Active Substance: ETANERCEPT
     Indication: RHEUMATOID ARTHRITIS
     Dosage: 50 MG, QWK
     Route: 065
     Dates: start: 20160616

REACTIONS (9)
  - Nasal herpes [Not Recovered/Not Resolved]
  - Influenza like illness [Not Recovered/Not Resolved]
  - Alopecia [Not Recovered/Not Resolved]
  - Oral herpes [Not Recovered/Not Resolved]
  - Headache [Unknown]
  - Head discomfort [Unknown]
  - Nasopharyngitis [Not Recovered/Not Resolved]
  - Pyrexia [Unknown]
  - Pain [Recovering/Resolving]

NARRATIVE: CASE EVENT DATE: 2016
